FAERS Safety Report 14173359 (Version 1)
Quarter: 2017Q4

REPORT INFORMATION
  Report Type: Spontaneous
  Country: US (occurrence: None)
  Receive Date: 20171109
  Receipt Date: 20171109
  Transmission Date: 20180321
  Serious: Yes (Other)
  Sender: FDA-Public Use
  Company Number: None

PATIENT
  Age: 65 Year
  Sex: Male

DRUGS (1)
  1. CAPECITABINE 500MG ACCORD [Suspect]
     Active Substance: CAPECITABINE
     Indication: COLON CANCER
     Dosage: 500MG 2 TABLETS TWICE A DAY MONDAY THROUGH FRIDAY FOR BY MOUTH
     Route: 048
     Dates: start: 20161216

REACTIONS (1)
  - Disease progression [None]
